FAERS Safety Report 5321926-0 (Version None)
Quarter: 2007Q2

REPORT INFORMATION
  Report Type: 
  Country: None (occurrence: None)
  Receive Date: 20070508
  Receipt Date: 20070508
  Transmission Date: 20071010
  Serious: No
  Sender: FDA-Public Use
  Company Number: None

PATIENT
  Sex: Female
  Weight: 54.8 kg

DRUGS (4)
  1. ELOXATIN [Suspect]
     Dosage: 107 MG
  2. FLUOROURACIL [Suspect]
     Dosage: 6762 MG
  3. BEVACIZUMAB (RHUMAB VEGF) [Suspect]
     Dosage: 572 MG
  4. LEUCOVORIN CALCIUM [Suspect]
     Dosage: 1310 MG

REACTIONS (1)
  - NEUROPATHY PERIPHERAL [None]
